FAERS Safety Report 5310619-1 (Version None)
Quarter: 2007Q1

REPORT INFORMATION
  Report Type: 
  Country: None (occurrence: None)
  Receive Date: 20070201
  Receipt Date: 20061122
  Transmission Date: 20070707
  Serious: No
  Sender: FDA-Public Use
  Company Number: 258784

PATIENT
  Age: 69 Year
  Sex: Female
  Weight: 73.9 kg

DRUGS (2)
  1. LEVEMIR [Suspect]
     Indication: DIABETES MELLITUS NON-INSULIN-DEPENDENT
     Dosage: SEE IMAGE
     Route: 058
     Dates: start: 20060901
  2. LEVEMIR [Suspect]

REACTIONS (1)
  - BLOOD GLUCOSE INCREASED [None]
